FAERS Safety Report 9025059 (Version 1)
Quarter: 2013Q1

REPORT INFORMATION
  Report Type: Spontaneous
  Country: GB (occurrence: GB)
  Receive Date: 20130121
  Receipt Date: 20130121
  Transmission Date: 20140127
  Serious: Yes (Disabling, Other)
  Sender: FDA-Public Use
  Company Number: GB-GENZYME-CAMP-1002676

PATIENT
  Sex: Male

DRUGS (3)
  1. CAMPATH [Suspect]
     Indication: MULTIPLE SCLEROSIS
     Dosage: 5 X 12 MG DOSES AT MONTH 0
     Route: 042
     Dates: start: 20080721
  2. CAMPATH [Suspect]
     Dosage: 3 X 12 MG DOSES AT MONTH 12
     Route: 042
     Dates: end: 200908
  3. AMITRIPTYLINE [Concomitant]
     Indication: PRODUCT USED FOR UNKNOWN INDICATION
     Dosage: 100 MG, UNK
     Route: 065
     Dates: start: 201103

REACTIONS (4)
  - Relapsing-remitting multiple sclerosis [Recovered/Resolved with Sequelae]
  - Relapsing-remitting multiple sclerosis [Recovered/Resolved with Sequelae]
  - Drug ineffective [Unknown]
  - Off label use [Unknown]
